FAERS Safety Report 8734152 (Version 4)
Quarter: 2013Q2

REPORT INFORMATION
  Report Type: Spontaneous
  Country: US (occurrence: US)
  Receive Date: 20120821
  Receipt Date: 20130424
  Transmission Date: 20140414
  Serious: No
  Sender: FDA-Public Use
  Company Number: US-ASTRAZENECA-2012SE57680

PATIENT
  Age: 64 Year
  Sex: Male
  Weight: 107.4 kg

DRUGS (29)
  1. NEXIUM [Suspect]
     Indication: GASTROOESOPHAGEAL REFLUX DISEASE
     Route: 048
     Dates: start: 2006
  2. NEXIUM [Suspect]
     Indication: GASTROOESOPHAGEAL REFLUX DISEASE
     Route: 048
     Dates: start: 2006
  3. NEXIUM [Suspect]
     Indication: PEPTIC ULCER
     Route: 048
     Dates: start: 2006
  4. NEXIUM [Suspect]
     Indication: GASTROOESOPHAGEAL REFLUX DISEASE
     Route: 048
     Dates: start: 20120307
  5. NEXIUM [Suspect]
     Indication: GASTROOESOPHAGEAL REFLUX DISEASE
     Route: 048
     Dates: start: 20120307
  6. NEXIUM [Suspect]
     Indication: PEPTIC ULCER
     Route: 048
     Dates: start: 20120307
  7. CRESTOR [Suspect]
     Route: 048
     Dates: start: 20100818
  8. LIDOCAINE [Suspect]
     Route: 065
     Dates: start: 20111222
  9. VITAMIN D-3 [Concomitant]
     Dates: start: 20111222
  10. VITAMIN C [Concomitant]
     Dates: start: 20120323
  11. VITAMIN B-12 [Concomitant]
     Dates: start: 20111222
  12. VENLAFAXINE HCL [Concomitant]
     Dates: start: 20120323
  13. TRAMADOL HCL [Concomitant]
     Dates: start: 20120323
  14. SERTRALINE HCL [Concomitant]
     Dates: start: 20101229
  15. RANEXA [Concomitant]
     Dates: start: 20101229
  16. PLAVIX [Concomitant]
     Dates: start: 20120613
  17. NITROMIST [Concomitant]
     Dosage: 0.4 MG/DOSE
     Dates: start: 20100818
  18. MIRALAX [Concomitant]
  19. IRON [Concomitant]
     Dates: start: 20111222
  20. GLUCOPHAGE [Concomitant]
     Route: 048
  21. GABAPENTIN [Concomitant]
     Dates: start: 20111222
  22. FLOMAX [Concomitant]
     Dates: start: 20100818
  23. ECOTRIN [Concomitant]
     Dosage: UD
  24. DOMPERIDONE [Concomitant]
     Dates: start: 20101229
  25. CLONAZEPAM [Concomitant]
     Dates: start: 20101229
  26. CITALOPRAM HBR [Concomitant]
     Dates: start: 20120613
  27. CARAFATE [Concomitant]
     Dosage: 1 GRAM, 1 T BID
     Route: 048
  28. BUTALBITAL-ACETAMINOPHEN-CAFFE BOTOX [Concomitant]
     Dates: start: 20120323
  29. BOTOX [Concomitant]
     Dosage: 100 UNITS
     Dates: start: 20120323

REACTIONS (8)
  - Cardiac disorder [Unknown]
  - Diabetes mellitus [Unknown]
  - Impaired gastric emptying [Unknown]
  - Nausea [Unknown]
  - Abdominal distension [Unknown]
  - Abdominal pain upper [Unknown]
  - Neuropathy peripheral [Unknown]
  - Intentional drug misuse [Unknown]
